FAERS Safety Report 8404785-9 (Version None)
Quarter: 2012Q2

REPORT INFORMATION
  Report Type: 
  Country: None (occurrence: None)
  Receive Date: 20120601
  Receipt Date: 20120523
  Transmission Date: 20120825
  Serious: Yes (Other)
  Sender: FDA-Public Use
  Company Number: US-ASTRAZENECA-2012SE33437

PATIENT
  Age: 74 Year
  Sex: Female
  Weight: 81.2 kg

DRUGS (32)
  1. PRILOSEC [Suspect]
     Route: 048
  2. FERROUS SULFATE TAB [Concomitant]
     Route: 048
  3. LASIX [Concomitant]
     Route: 048
  4. LEVEMIR [Concomitant]
     Dosage: 100 UNIT/ML, INJECT 10 UNITS INTO SKIN NIGHTLY
  5. CRESTOR [Suspect]
     Route: 048
  6. CALCIUM CARBONATE [Concomitant]
     Route: 048
  7. CHRONULAC [Concomitant]
     Dosage: 10 GM/15 ML, TAKE 20 G BY MOUTH THREE TIMES A DAY
     Route: 048
  8. AMITIZA [Concomitant]
     Route: 048
  9. ALDACTONE [Concomitant]
     Route: 048
  10. TESSALON [Concomitant]
     Indication: COUGH
     Dosage: ONE CAPSULE THREE TIMES A DAY , AS NEEDED
     Route: 048
  11. VITAMIN C [Concomitant]
     Route: 048
  12. COZAAR [Concomitant]
     Route: 048
  13. ALTACE [Concomitant]
     Route: 048
  14. LIDOCAINE [Suspect]
     Dosage: PLACE ONE PATCH ONTO SKIN EVERY 12 HOURS
     Route: 061
  15. ASPIRIN [Concomitant]
     Route: 048
  16. NEURONTIN [Concomitant]
     Route: 048
  17. JANUVIA [Concomitant]
     Route: 048
  18. FISH OIL-OMEGA-3-FATTY ACIDS [Concomitant]
     Route: 048
  19. HUMALOG [Concomitant]
     Dosage: 100 UNIT/ML, INJECT INTO SKIN THREE TIME DAILY
  20. ZYLOPRIM [Concomitant]
     Route: 048
  21. ASTELIN [Concomitant]
     Dosage: ONE SPRAY TWO TIMES A DAILY, USE IN EACH NOSTRIL AS DIRECTED
     Route: 045
  22. SYNTHROID [Concomitant]
     Route: 048
  23. CASCARA SAGRADA [Concomitant]
     Route: 048
  24. TEARS RENEWED [Concomitant]
     Dosage: ONE DROP THREE TIMES A DAY AS NEEDED
     Route: 047
  25. ZYRTEC [Concomitant]
     Route: 048
  26. TRAIL SPIRIVA [Concomitant]
  27. SYMBICORT [Suspect]
     Dosage: 160/4.5 MCG, TWO PUFFS, TWO TIMES DAILY
     Route: 055
  28. VENTOLIN HFA [Concomitant]
     Dosage: 108 (90 BASE) MCG/ACT, TWO PUFFS INTO LUNGS EVERY 6 HOURS AS NEEDED
     Route: 055
  29. COREG [Concomitant]
     Route: 048
  30. CO-Q-10 [Concomitant]
     Route: 048
  31. GLUCOSAMINE-CHONDROITIN [Concomitant]
     Dosage: 500-400 MG, ONE TABLET THYREE TIMES A DAY
     Route: 048
  32. SINGULAIR [Concomitant]
     Route: 048

REACTIONS (18)
  - CARDIAC FAILURE [None]
  - RENAL FAILURE [None]
  - ANAEMIA [None]
  - BACK PAIN [None]
  - GOUT [None]
  - URINARY TRACT INFECTION [None]
  - GASTROOESOPHAGEAL REFLUX DISEASE [None]
  - HYPERTENSION [None]
  - OBSTRUCTIVE AIRWAYS DISORDER [None]
  - BLOOD CHOLESTEROL INCREASED [None]
  - DIABETES MELLITUS [None]
  - GENERALISED OEDEMA [None]
  - THYROID DISORDER [None]
  - NEURALGIA [None]
  - ASTHMA [None]
  - CONSTIPATION [None]
  - BLOOD TRIGLYCERIDES INCREASED [None]
  - WHEEZING [None]
